FAERS Safety Report 24913448 (Version 1)
Quarter: 2025Q1

REPORT INFORMATION
  Report Type: Spontaneous
  Country: IT (occurrence: IT)
  Receive Date: 20250201
  Receipt Date: 20250201
  Transmission Date: 20250409
  Serious: Yes (Other)
  Sender: AMGEN
  Company Number: IT-AMGEN-ITASP2025017804

PATIENT
  Age: 51 Year
  Sex: Female

DRUGS (14)
  1. XGEVA [Suspect]
     Active Substance: DENOSUMAB
     Indication: Metastases to bone
     Route: 058
     Dates: start: 201501
  2. DOXORUBICIN [Concomitant]
     Active Substance: DOXORUBICIN
  3. PACLITAXEL [Concomitant]
     Active Substance: PACLITAXEL
  4. CYCLOPHOSPHAMIDE [Concomitant]
     Active Substance: CYCLOPHOSPHAMIDE
     Route: 040
  5. METHOTREXATE [Concomitant]
     Active Substance: METHOTREXATE
     Route: 040
  6. FLUOROURACIL [Concomitant]
     Active Substance: FLUOROURACIL
     Route: 040
  7. GONADORELIN [Concomitant]
     Active Substance: GONADORELIN
     Dosage: UNK, QMO
     Route: 030
  8. TAMOXIFEN [Concomitant]
     Active Substance: TAMOXIFEN
     Dosage: 20 MILLIGRAM, QD
     Route: 048
  9. LETROZOLE [Concomitant]
     Active Substance: LETROZOLE
     Dosage: 2.5 MILLIGRAM, QD
  10. EVEROLIMUS [Concomitant]
     Active Substance: EVEROLIMUS
     Dates: start: 201501
  11. EXEMESTANE [Concomitant]
     Active Substance: EXEMESTANE
     Dates: start: 201501
  12. DOCETAXEL [Concomitant]
     Active Substance: DOCETAXEL
     Dates: start: 201501, end: 201902
  13. GEMCITABINE [Concomitant]
     Active Substance: GEMCITABINE
     Dates: start: 201501, end: 201902
  14. VINORELBINE [Concomitant]
     Active Substance: VINORELBINE TARTRATE
     Dates: start: 201501, end: 201902

REACTIONS (6)
  - Breast cancer metastatic [Unknown]
  - Thyroid cancer [Unknown]
  - Bone lesion [Unknown]
  - Metastases to liver [Unknown]
  - Osteonecrosis of jaw [Unknown]
  - Palmar-plantar erythrodysaesthesia syndrome [Unknown]

NARRATIVE: CASE EVENT DATE: 20190201
